FAERS Safety Report 10043899 (Version 2)
Quarter: 2014Q2

REPORT INFORMATION
  Report Type: Spontaneous
  Country: US (occurrence: US)
  Receive Date: 20140328
  Receipt Date: 20140516
  Transmission Date: 20141212
  Serious: No
  Sender: FDA-Public Use
  Company Number: US-B.I. PHARMACEUTICALS,INC./RIDGEFIELD-2014-BI-12703BP

PATIENT
  Age: 71 Year
  Sex: Female

DRUGS (14)
  1. COMBIVENT [Suspect]
     Indication: CHRONIC OBSTRUCTIVE PULMONARY DISEASE
     Dosage: STRENGTH: 18 MCG / 103 MCG; DAILY DOSE: 144 MCG/ 1024 MCG
     Route: 055
     Dates: start: 2000, end: 201307
  2. COMBIVENT [Suspect]
     Indication: CHRONIC OBSTRUCTIVE PULMONARY DISEASE
     Dosage: STRENGTH: 20 MCG / 100 MCG; DAILY DOSE: 80 MCG/ 400 MCG
     Route: 055
     Dates: start: 201307
  3. ATROVENT INHALATION SOLUTION [Suspect]
     Indication: CHRONIC OBSTRUCTIVE PULMONARY DISEASE
     Dosage: 135 MCG
     Route: 055
     Dates: start: 201312, end: 201401
  4. ATROVENT INHALATION SOLUTION [Suspect]
     Dosage: 12 PUF
     Route: 055
     Dates: start: 20140117
  5. ADVAIR DISKUS [Concomitant]
     Dosage: FORMULATION:AERO POW, DOSE PER APPLICATION: 250-50MCG/DOSE
     Route: 055
     Dates: start: 20130625
  6. ATIVAN [Concomitant]
     Indication: DEPRESSION
     Route: 048
  7. CALCIUM [Concomitant]
     Dosage: 600 MG
     Route: 065
     Dates: start: 20060829
  8. DUONEB [Concomitant]
     Dosage: DOSE PER APPLICATION: 0.5-2.5 (3)MG/3ML SOLUTION
     Route: 055
     Dates: start: 20131112
  9. PROAIR HFA [Concomitant]
     Dosage: 8 PUF
     Route: 055
     Dates: start: 20140115
  10. IPRATROPIUM- ALBUTEROL [Concomitant]
     Dosage: DOSE PER APPLICATION: 0.5-2.5 (3)MG/3ML
     Route: 065
     Dates: start: 20091005
  11. OXYGEN [Concomitant]
     Dosage: DOSE PER APPLICATION:OXYGEN LPM INHALATION 3 LPM
     Route: 055
     Dates: start: 20090106
  12. VITAMIN D [Concomitant]
     Route: 048
  13. ZOLPIDEM TARTRATE [Concomitant]
     Route: 048
  14. ALPRAZOLAM ER [Concomitant]
     Route: 048

REACTIONS (10)
  - Insomnia [Not Recovered/Not Resolved]
  - Feeling cold [Not Recovered/Not Resolved]
  - Lung disorder [Not Recovered/Not Resolved]
  - Nervousness [Not Recovered/Not Resolved]
  - Bronchitis [Not Recovered/Not Resolved]
  - Tremor [Not Recovered/Not Resolved]
  - Cough [Not Recovered/Not Resolved]
  - Asthenia [Not Recovered/Not Resolved]
  - Drug ineffective [Recovered/Resolved]
  - Tremor [Unknown]
